FAERS Safety Report 9813384 (Version 1)
Quarter: 2014Q1

REPORT INFORMATION
  Report Type: Spontaneous
  Country: DE (occurrence: DE)
  Receive Date: 20140113
  Receipt Date: 20140113
  Transmission Date: 20141002
  Serious: Yes (Other)
  Sender: FDA-Public Use
  Company Number: DE-PFIZER INC-2014005809

PATIENT
  Age: 72 Year
  Sex: Male

DRUGS (1)
  1. AMLODIPINE BESILATE [Suspect]
     Indication: HYPERTENSION
     Dosage: UNK

REACTIONS (3)
  - Dystonia [Not Recovered/Not Resolved]
  - Akathisia [Not Recovered/Not Resolved]
  - Dyspnoea [Not Recovered/Not Resolved]
